FAERS Safety Report 18441628 (Version 3)
Quarter: 2020Q4

REPORT INFORMATION
  Report Type: Report from Study
  Country: DE (occurrence: DE)
  Receive Date: 20201029
  Receipt Date: 20201214
  Transmission Date: 20210114
  Serious: Yes (Other)
  Sender: FDA-Public Use
  Company Number: DE-TAKEDA-DE202034088

PATIENT
  Age: 4 Year
  Sex: Male

DRUGS (1)
  1. FACTOR VIII INHIBITOR BYPASSING FRACTION; BAXJECT II NF [Suspect]
     Active Substance: ANTI-INHIBITOR COAGULANT COMPLEX
     Indication: FACTOR VIII DEFICIENCY
     Dosage: 1000 INTERNATIONAL UNIT,
     Route: 042
     Dates: start: 20190712

REACTIONS (1)
  - Suspected COVID-19 [Recovered/Resolved]

NARRATIVE: CASE EVENT DATE: 20201015
